FAERS Safety Report 18764914 (Version 4)
Quarter: 2021Q4

REPORT INFORMATION
  Report Type: Spontaneous
  Country: FR (occurrence: FR)
  Receive Date: 20210120
  Receipt Date: 20211220
  Transmission Date: 20220303
  Serious: Yes (Death, Other)
  Sender: FDA-Public Use
  Company Number: None

PATIENT
  Age: 71 Year
  Sex: Male
  Weight: 78 kg

DRUGS (8)
  1. ATORVASTATIN CALCIUM [Suspect]
     Active Substance: ATORVASTATIN CALCIUM
     Indication: Dyslipidaemia
     Dosage: 10 MG, 1X/DAY
     Route: 048
     Dates: start: 2016, end: 20201113
  2. PANTOPRAZOLE [Suspect]
     Active Substance: PANTOPRAZOLE
     Indication: Dyslipidaemia
     Dosage: 80 MG, 1X/DAY
     Route: 042
     Dates: start: 20201105, end: 20201126
  3. CEFOTAXIME [Suspect]
     Active Substance: CEFOTAXIME SODIUM
     Indication: Antibiotic prophylaxis
     Dosage: 1 G, 1X/DAY
     Route: 042
     Dates: start: 20201105, end: 20201113
  4. LOVENOX [Suspect]
     Active Substance: ENOXAPARIN SODIUM
     Indication: Thrombosis prophylaxis
     Dosage: 1 DF, 1X/DAY
     Route: 058
     Dates: start: 20201105, end: 20201113
  5. DEXAMETHASONE [Suspect]
     Active Substance: DEXAMETHASONE
     Dosage: 6 MG, 1X/DAY
     Route: 042
     Dates: start: 20201105, end: 20201113
  6. BISOPROLOL FUMARATE [Suspect]
     Active Substance: BISOPROLOL FUMARATE
     Dosage: 1.25 MG, 1X/DAY
     Route: 048
     Dates: start: 2016, end: 20201113
  7. LEVOFLOXACIN [Suspect]
     Active Substance: LEVOFLOXACIN
     Indication: Antibiotic prophylaxis
     Dosage: 500 MG, 1X/DAY
     Route: 048
     Dates: start: 20201105, end: 20201113
  8. ASPIRIN [Suspect]
     Active Substance: ASPIRIN
     Indication: Thrombosis prophylaxis
     Dosage: 100 MG, 1X/DAY
     Route: 048
     Dates: start: 2016, end: 20201113

REACTIONS (3)
  - Multiple organ dysfunction syndrome [Fatal]
  - Shock haemorrhagic [Fatal]
  - Haematoma muscle [Fatal]

NARRATIVE: CASE EVENT DATE: 20201113
